FAERS Safety Report 15951124 (Version 1)
Quarter: 2019Q1

REPORT INFORMATION
  Report Type: Spontaneous
  Country: AT (occurrence: AT)
  Receive Date: 20190212
  Receipt Date: 20190212
  Transmission Date: 20190417
  Serious: Yes (Hospitalization)
  Sender: FDA-Public Use
  Company Number: AT-009507513-1902AUT000929

PATIENT
  Age: 59 Year
  Sex: Male

DRUGS (1)
  1. ATOZET 10 MG/80 MG FILMTABLETTEN [Suspect]
     Active Substance: ATORVASTATIN CALCIUM\EZETIMIBE
     Dosage: 10/80 MG
     Route: 048
     Dates: end: 2018

REACTIONS (4)
  - Metabolic disorder [Recovering/Resolving]
  - Glycosylated haemoglobin abnormal [Recovered/Resolved]
  - Gamma-glutamyltransferase abnormal [Recovered/Resolved]
  - Low density lipoprotein abnormal [Not Recovered/Not Resolved]

NARRATIVE: CASE EVENT DATE: 201809
